FAERS Safety Report 5657589-4 (Version None)
Quarter: 2008Q1

REPORT INFORMATION
  Report Type: 
  Country: None (occurrence: None)
  Receive Date: 20080307
  Receipt Date: 20080307
  Transmission Date: 20080703
  Serious: Yes (Other)
  Sender: FDA-Public Use
  Company Number: None

PATIENT
  Age: 27 Year
  Sex: Male
  Weight: 72.5755 kg

DRUGS (1)
  1. CHANTIX [Suspect]
     Indication: SMOKING CESSATION THERAPY
     Dosage: 1 PILL DAILY PO
     Route: 048
     Dates: start: 20080227, end: 20080306

REACTIONS (6)
  - ABNORMAL BEHAVIOUR [None]
  - APATHY [None]
  - DEPRESSION [None]
  - IMPAIRED WORK ABILITY [None]
  - MOOD ALTERED [None]
  - SUICIDAL IDEATION [None]
